FAERS Safety Report 8036651-5 (Version None)
Quarter: 2012Q1

REPORT INFORMATION
  Report Type: 
  Country: None (occurrence: None)
  Receive Date: 20120106
  Receipt Date: 20111230
  Transmission Date: 20120608
  Serious: Yes (Hospitalization, Other)
  Sender: FDA-Public Use
  Company Number: AUR-APL-2011-06249

PATIENT
  Age: 87 Year
  Sex: Female
  Weight: 49.8957 kg

DRUGS (2)
  1. CIPROFLOXACIN [Suspect]
     Indication: URINARY TRACT INFECTION
     Dosage: 500 MG (250 MG, 2 IN 1 D), ORAL
     Route: 048
     Dates: start: 20111114, end: 20111121
  2. SYNTHROID [Concomitant]

REACTIONS (10)
  - LOSS OF CONSCIOUSNESS [None]
  - CONSTIPATION [None]
  - MUSCLE SPASMS [None]
  - ARTHRALGIA [None]
  - CHILLS [None]
  - RASH [None]
  - MUSCULOSKELETAL STIFFNESS [None]
  - JOINT SWELLING [None]
  - SWELLING FACE [None]
  - COLITIS [None]
